FAERS Safety Report 17376579 (Version 1)
Quarter: 2020Q1

REPORT INFORMATION
  Report Type: Spontaneous
  Country: US (occurrence: US)
  Receive Date: 20200206
  Receipt Date: 20200206
  Transmission Date: 20200409
  Serious: No
  Sender: FDA-Public Use
  Company Number: US-HORIZON-PRE-0044-2020

PATIENT
  Age: 60 Year
  Sex: Female

DRUGS (2)
  1. AMIODARONE [Concomitant]
     Active Substance: AMIODARONE
  2. RAYOS [Suspect]
     Active Substance: PREDNISONE
     Indication: THYROID DISORDER
     Dosage: 5MG ONCE DAILY
     Dates: start: 2019

REACTIONS (2)
  - Thyroid disorder [Unknown]
  - Product dose omission [Not Recovered/Not Resolved]

NARRATIVE: CASE EVENT DATE: 20200131
